FAERS Safety Report 8876852 (Version 2)
Quarter: 2013Q2

REPORT INFORMATION
  Report Type: Spontaneous
  Country: US (occurrence: None)
  Receive Date: 20121024
  Receipt Date: 20130507
  Transmission Date: 20140414
  Serious: Yes (Hospitalization, Other)
  Sender: FDA-Public Use
  Company Number: ADR-2012-01926

PATIENT
  Sex: Male

DRUGS (2)
  1. LIORESAL INTRATHECAL (BACLOFEN INJECTION) [Suspect]
     Indication: MUSCLE SPASTICITY
  2. LIORESAL INTRATHECAL (BACLOFEN INJECTION) [Suspect]
     Indication: CEREBRAL PALSY

REACTIONS (10)
  - Infection [None]
  - Pyrexia [None]
  - Irritability [None]
  - Hypertonia [None]
  - Rhabdomyolysis [None]
  - Dialysis [None]
  - Withdrawal syndrome [None]
  - Muscle spasticity [None]
  - Device failure [None]
  - Unevaluable event [None]
